FAERS Safety Report 7476742-0 (Version None)
Quarter: 2011Q2

REPORT INFORMATION
  Report Type: 
  Country: None (occurrence: None)
  Receive Date: 20110512
  Receipt Date: 20110509
  Transmission Date: 20111010
  Serious: Yes (Hospitalization)
  Sender: FDA-Public Use
  Company Number: AR-BRISTOL-MYERS SQUIBB COMPANY-15728884

PATIENT
  Age: 77 Year
  Sex: Female

DRUGS (1)
  1. COUMADIN [Suspect]
     Dosage: TAKING FROM 12 YEARS.

REACTIONS (3)
  - THROMBOSIS [None]
  - DERMAL CYST [None]
  - INTERNATIONAL NORMALISED RATIO INCREASED [None]
